FAERS Safety Report 19561090 (Version 1)
Quarter: 2021Q3

REPORT INFORMATION
  Report Type: Spontaneous
  Country: FR (occurrence: FR)
  Receive Date: 20210715
  Receipt Date: 20210715
  Transmission Date: 20211014
  Serious: Yes (Death, Hospitalization, Other)
  Sender: FDA-Public Use
  Company Number: FR-PFIZER INC-2021810502

PATIENT
  Age: 89 Year
  Sex: Male

DRUGS (15)
  1. SPIRAMYCIN [Suspect]
     Active Substance: SPIRAMYCIN
     Indication: ANTIBIOTIC THERAPY
     Dosage: UNK
  2. BISOPROLOL [Suspect]
     Active Substance: BISOPROLOL
     Indication: ATRIAL FIBRILLATION
  3. DEXAMETHASONE. [Concomitant]
     Active Substance: DEXAMETHASONE
     Dosage: 6 MG, 1X/DAY
  4. FUROSEMIDE. [Suspect]
     Active Substance: FUROSEMIDE
     Indication: HYPERTENSION
     Dosage: UNK
  5. TINZAPARIN [Concomitant]
     Active Substance: TINZAPARIN
     Indication: COAGULOPATHY
     Dosage: 175 IU/KG, 1X/DAY
  6. ENOXAPARIN [Concomitant]
     Active Substance: ENOXAPARIN
     Indication: INTERNATIONAL NORMALISED RATIO FLUCTUATION
     Dosage: 8000 IU, 1X/DAY
  7. AMOXICILLIN. [Suspect]
     Active Substance: AMOXICILLIN
     Indication: ANTIBIOTIC THERAPY
     Dosage: UNK
  8. RAMIPRIL. [Suspect]
     Active Substance: RAMIPRIL
     Indication: CARDIAC VALVE DISEASE
  9. BISOPROLOL [Suspect]
     Active Substance: BISOPROLOL
     Indication: CARDIAC VALVE DISEASE
  10. RAMIPRIL. [Suspect]
     Active Substance: RAMIPRIL
     Indication: HYPERTENSION
     Dosage: UNK
  11. WARFARIN [Interacting]
     Active Substance: WARFARIN
     Indication: ATRIAL FIBRILLATION
     Dosage: 5 MG, 1X/DAY
  12. ENOXAPARIN [Concomitant]
     Active Substance: ENOXAPARIN
     Dosage: 200 IU/KG, 1X/DAY
     Route: 058
  13. AZITHROMYCIN ANHYDROUS. [Suspect]
     Active Substance: AZITHROMYCIN ANHYDROUS
     Dosage: UNK
  14. WARFARIN [Interacting]
     Active Substance: WARFARIN
     Indication: CARDIAC VALVE DISEASE
  15. CEFOTAXIME [Concomitant]
     Active Substance: CEFOTAXIME SODIUM
     Indication: ANTIBIOTIC THERAPY

REACTIONS (17)
  - Haemoglobin decreased [Unknown]
  - Drug hypersensitivity [Unknown]
  - Overdose [Unknown]
  - Rales [Unknown]
  - Fibrin D dimer increased [Unknown]
  - Epistaxis [Unknown]
  - Coagulopathy [Unknown]
  - Blood fibrinogen increased [Unknown]
  - Pulmonary oedema [Unknown]
  - Pulmonary embolism [Unknown]
  - Pulmonary congestion [Unknown]
  - Septic shock [Fatal]
  - Hypoxia [Unknown]
  - Coagulation factor V level increased [Unknown]
  - Heart sounds abnormal [Unknown]
  - Concomitant disease aggravated [Unknown]
  - Drug interaction [Unknown]
